FAERS Safety Report 25165873 (Version 1)
Quarter: 2025Q2

REPORT INFORMATION
  Report Type: Report from Study
  Country: IT (occurrence: IT)
  Receive Date: 20250407
  Receipt Date: 20250407
  Transmission Date: 20250717
  Serious: No
  Sender: SANDOZ
  Company Number: IT-SANDOZ-SDZ2024IT083333

PATIENT
  Age: 22 Year
  Sex: Female
  Weight: 90 kg

DRUGS (1)
  1. OMNITROPE [Suspect]
     Active Substance: SOMATROPIN
     Indication: Growth hormone deficiency
     Dosage: 0.4 MG, QD
     Route: 058
     Dates: start: 20240202

REACTIONS (4)
  - Product dose omission issue [Unknown]
  - Product use complaint [Unknown]
  - Therapy cessation [Unknown]
  - Device mechanical issue [Unknown]

NARRATIVE: CASE EVENT DATE: 20240925
